FAERS Safety Report 19432472 (Version 1)
Quarter: 2021Q2

REPORT INFORMATION
  Report Type: Spontaneous
  Country: FR (occurrence: FR)
  Receive Date: 20210618
  Receipt Date: 20210618
  Transmission Date: 20210717
  Serious: Yes (Other)
  Sender: FDA-Public Use
  Company Number: FR-SA-2021SA200852

PATIENT
  Sex: Male

DRUGS (2)
  1. CEREZYME [Suspect]
     Active Substance: IMIGLUCERASE
     Dosage: 10 DF (10 FL)
     Route: 042
  2. CEREZYME [Suspect]
     Active Substance: IMIGLUCERASE
     Dosage: 20 DF (20 FL)
     Route: 042

REACTIONS (2)
  - Bone disorder [Unknown]
  - Sepsis [Unknown]
